FAERS Safety Report 7593296-9 (Version None)
Quarter: 2011Q3

REPORT INFORMATION
  Report Type: 
  Country: None (occurrence: None)
  Receive Date: 20110706
  Receipt Date: 20110624
  Transmission Date: 20111222
  Serious: Yes (Other)
  Sender: FDA-Public Use
  Company Number: US-BAYER-2011-023900

PATIENT
  Age: 18 Year
  Sex: Female
  Weight: 59 kg

DRUGS (10)
  1. WOMEN'S MULTI [Concomitant]
     Indication: MULTI-VITAMIN DEFICIENCY
     Dosage: QD
     Route: 048
     Dates: start: 20060101
  2. RHINOCORT [Concomitant]
     Dosage: UNK
     Dates: start: 20090916
  3. YASMIN [Suspect]
  4. ASTELIN [Concomitant]
     Dosage: UNK
     Dates: start: 20090917
  5. NSAID'S [Concomitant]
     Indication: ANALGESIC THERAPY
     Dosage: UNK
     Route: 048
     Dates: start: 20000101
  6. YAZ [Suspect]
     Dosage: UNK
     Dates: start: 20090601, end: 20090701
  7. JOINT MD [Concomitant]
     Indication: ARTHRALGIA
     Dosage: BID
     Route: 048
     Dates: start: 20080101
  8. DIFFERIN [Concomitant]
     Dosage: UNK
     Dates: start: 20091019
  9. SINGULAIR [Concomitant]
     Dosage: 10 MG
     Route: 048
     Dates: start: 20090916
  10. ALLERGY MEDICATION [Concomitant]
     Indication: CONJUNCTIVAL HYPERAEMIA
     Dosage: UNK
     Route: 048
     Dates: start: 19980101

REACTIONS (6)
  - GALLBLADDER DISORDER [None]
  - PAIN [None]
  - CHOLECYSTITIS CHRONIC [None]
  - BILIARY DYSKINESIA [None]
  - INJURY [None]
  - GENERAL PHYSICAL HEALTH DETERIORATION [None]
